FAERS Safety Report 9444889 (Version 1)
Quarter: 2013Q3

REPORT INFORMATION
  Report Type: Spontaneous
  Country: DK (occurrence: BE)
  Receive Date: 20130807
  Receipt Date: 20130807
  Transmission Date: 20140515
  Serious: Yes (Hospitalization)
  Sender: FDA-Public Use
  Company Number: BE-FRI-1000047536

PATIENT
  Age: 83 Year
  Sex: Female

DRUGS (7)
  1. ESCITALOPRAM [Suspect]
     Indication: DEPRESSION
     Route: 048
     Dates: start: 2012
  2. MOTIFENE [Suspect]
     Indication: ARTHRALGIA
     Dosage: 150 MG
     Route: 048
     Dates: start: 20130628, end: 20130707
  3. ASAFLOW [Suspect]
     Indication: PROPHYLAXIS
     Route: 048
     Dates: end: 20130711
  4. BISOPROLOL [Concomitant]
     Indication: HYPERTENSION
     Route: 048
  5. PERINDOPRIL [Concomitant]
     Indication: HYPERTENSION
     Route: 048
  6. CRESTOR [Concomitant]
     Indication: HYPERCHOLESTEROLAEMIA
     Route: 048
  7. NOCTAMID [Concomitant]
     Indication: SLEEP DISORDER
     Route: 048

REACTIONS (3)
  - Rectal haemorrhage [Not Recovered/Not Resolved]
  - Barrett^s oesophagus [Not Recovered/Not Resolved]
  - Gastric ulcer [Not Recovered/Not Resolved]
